FAERS Safety Report 8306791-1 (Version None)
Quarter: 2012Q1

REPORT INFORMATION
  Report Type: 
  Country: None (occurrence: None)
  Receive Date: 20120327
  Receipt Date: 20100212
  Transmission Date: 20120608
  Serious: Yes (Other)
  Sender: FDA-Public Use
  Company Number: PHHY2010US10377

PATIENT
  Sex: Female

DRUGS (1)
  1. GLEEVEC [Suspect]
     Indication: NEOPLASM
     Dosage: 400 MG DAILY, ORAL
     Route: 048
     Dates: start: 20090918, end: 20100210

REACTIONS (1)
  - DRUG INEFFECTIVE [None]
